FAERS Safety Report 7026626-7 (Version None)
Quarter: 2010Q4

REPORT INFORMATION
  Report Type: 
  Country: None (occurrence: None)
  Receive Date: 20101004
  Receipt Date: 20100923
  Transmission Date: 20110411
  Serious: No
  Sender: FDA-Public Use
  Company Number: US-JNJFOC-20100908031

PATIENT
  Age: 55 Year
  Sex: Female
  Weight: 59.42 kg

DRUGS (5)
  1. SANDOZ FENTANYL TRANSDERMAL SYSTEM [Suspect]
     Indication: PAIN IN EXTREMITY
     Dosage: 1 TO 2 PATCHES EVERY 72 HOURS AS NEEDED
     Route: 062
  2. VALTREX [Concomitant]
     Indication: HERPES VIRUS INFECTION
     Route: 048
  3. LEVOXYL [Concomitant]
     Indication: THYROID DISORDER
     Route: 048
  4. METOPROLOL TARTRATE [Concomitant]
     Indication: HYPERTENSION
     Route: 048
  5. KLONOPIN [Concomitant]
     Indication: TIC
     Route: 048

REACTIONS (10)
  - ABNORMAL DREAMS [None]
  - CHILLS [None]
  - DRUG ADMINISTERED AT INAPPROPRIATE SITE [None]
  - DRUG INEFFECTIVE [None]
  - FATIGUE [None]
  - HEADACHE [None]
  - OROPHARYNGEAL PAIN [None]
  - PAIN [None]
  - PRODUCT QUALITY ISSUE [None]
  - PYREXIA [None]
